FAERS Safety Report 6483614-7 (Version None)
Quarter: 2009Q4

REPORT INFORMATION
  Report Type: 
  Country: None (occurrence: None)
  Receive Date: 20091209
  Receipt Date: 20091207
  Transmission Date: 20100525
  Serious: Yes (Hospitalization)
  Sender: FDA-Public Use
  Company Number: GXKR2009DE13151

PATIENT
  Age: 70 Year
  Sex: Male
  Weight: 69 kg

DRUGS (3)
  1. PREDNISOLONE TAB [Interacting]
     Indication: RHEUMATOID ARTHRITIS
     Dosage: 2.5 MG, QD
     Route: 048
     Dates: start: 20070101
  2. DOXYCYCLINE [Suspect]
     Indication: LOCALISED INFECTION
     Dosage: 200 MG, QD
     Route: 048
     Dates: start: 20091111, end: 20091118
  3. ARAVA [Suspect]
     Route: 048

REACTIONS (1)
  - DIARRHOEA [None]
